FAERS Safety Report 6733509-6 (Version None)
Quarter: 2010Q2

REPORT INFORMATION
  Report Type: 
  Country: None (occurrence: None)
  Receive Date: 20100520
  Receipt Date: 20100520
  Transmission Date: 20101027
  Serious: Yes (Other)
  Sender: FDA-Public Use
  Company Number: PHHO2009GB05269

PATIENT
  Sex: Male
  Weight: 84.4 kg

DRUGS (10)
  1. ALISKIREN ALI+TAB+HT [Suspect]
     Indication: ESSENTIAL HYPERTENSION
     Dosage: 150 MG
     Route: 048
     Dates: start: 20090216, end: 20090421
  2. AMLODIPINE [Suspect]
     Indication: HYPERTENSION
     Dosage: 5 MG
     Dates: start: 20090216, end: 20090421
  3. SIMVASTATIN [Concomitant]
  4. METFORMIN HYDROCHLORIDE [Concomitant]
  5. GLICLAZIDE [Concomitant]
  6. ASPIRIN [Concomitant]
  7. NITRAZEPAM [Concomitant]
  8. ACETAMINOPHEN WITH PROPOXYPHENE HCL TAB [Concomitant]
  9. SENOKOT [Concomitant]
  10. ARTHROTEC [Concomitant]

REACTIONS (2)
  - CARDIAC FAILURE CONGESTIVE [None]
  - MYOCARDIAL ISCHAEMIA [None]
